FAERS Safety Report 4530303-1 (Version None)
Quarter: 2004Q4

REPORT INFORMATION
  Report Type: 
  Country: None (occurrence: None)
  Receive Date: 20041217
  Receipt Date: 20041122
  Transmission Date: 20050328
  Serious: Yes (Hospitalization, Disabling)
  Sender: FDA-Public Use
  Company Number: US-MERCK-0411USA03573

PATIENT
  Age: 63 Year
  Sex: Female

DRUGS (4)
  1. VIOXX [Suspect]
     Indication: OSTEOARTHRITIS
     Route: 048
     Dates: start: 20000901, end: 20001008
  2. VIOXX [Suspect]
     Route: 048
     Dates: start: 20001009, end: 20001020
  3. VIOXX [Suspect]
     Route: 048
     Dates: start: 20001025
  4. VITAMINS (UNSPECIFIED) [Concomitant]
     Route: 065

REACTIONS (11)
  - CAROTID ARTERY STENOSIS [None]
  - CEREBROVASCULAR ACCIDENT [None]
  - GASTROOESOPHAGEAL REFLUX DISEASE [None]
  - HEMIANOPIA [None]
  - HYPERCHOLESTEROLAEMIA [None]
  - HYPERTENSION [None]
  - PRODUCTIVE COUGH [None]
  - PULMONARY CONGESTION [None]
  - SINUSITIS [None]
  - TINNITUS [None]
  - VERTIGO [None]
